FAERS Safety Report 21193101 (Version 1)
Quarter: 2022Q3

REPORT INFORMATION
  Report Type: Spontaneous
  Country: US (occurrence: US)
  Receive Date: 20220810
  Receipt Date: 20220810
  Transmission Date: 20221026
  Serious: Yes (Death, Life-Threatening, Hospitalization, Other)
  Sender: FDA-Public Use
  Company Number: US-MLMSERVICE-20220722-3690568-1

PATIENT

DRUGS (2)
  1. TACROLIMUS [Suspect]
     Active Substance: TACROLIMUS
     Indication: Immunosuppressant drug therapy
     Dosage: TARGET LEVEL RANGED BETWEEN 3 AND 5 NG/ML
     Route: 065
  2. PREDNISONE [Suspect]
     Active Substance: PREDNISONE
     Indication: Immunosuppressant drug therapy
     Dosage: 0.25 MILLIGRAM/KILOGRAM, QD
     Route: 065

REACTIONS (12)
  - Myelodysplastic syndrome [Fatal]
  - Haemorrhoids thrombosed [Unknown]
  - Histoplasmosis [Unknown]
  - Haemophagocytic lymphohistiocytosis [Unknown]
  - Cryptosporidiosis infection [Unknown]
  - Enterococcal sepsis [Unknown]
  - Parvovirus B19 infection [Unknown]
  - Haemolytic anaemia [Unknown]
  - Pneumonia [Unknown]
  - Pancytopenia [Unknown]
  - Rectal haemorrhage [Unknown]
  - Hypotension [Unknown]
